FAERS Safety Report 5273493-8 (Version None)
Quarter: 2007Q1

REPORT INFORMATION
  Report Type: 
  Country: None (occurrence: None)
  Receive Date: 20070321
  Receipt Date: 20070321
  Transmission Date: 20070707
  Serious: Yes (Other)
  Sender: FDA-Public Use
  Company Number: None

PATIENT
  Sex: Male

DRUGS (2)
  1. ATENOLOL [Suspect]
     Indication: ARRHYTHMIA
     Dosage: 50MG PO BID
     Route: 048
     Dates: start: 20061001
  2. ATENOLOL [Suspect]
     Indication: HYPERTENSION
     Dosage: 50MG PO BID
     Route: 048
     Dates: start: 20061001

REACTIONS (3)
  - BRADYCARDIA [None]
  - HYPOTENSION [None]
  - SYNCOPE [None]
